FAERS Safety Report 4526795-4 (Version None)
Quarter: 2004Q4

REPORT INFORMATION
  Report Type: 
  Country: None (occurrence: None)
  Receive Date: 20041213
  Receipt Date: 20041204
  Transmission Date: 20050328
  Serious: No
  Sender: FDA-Public Use
  Company Number: ZONI002078

PATIENT
  Age: 4 Year
  Sex: Female

DRUGS (4)
  1. EXCEGRAN (ZONISAMIDE) [Suspect]
     Indication: EPILEPSY
     Dosage: SEE IMAGE
     Route: 048
     Dates: start: 20040101, end: 20040101
  2. EXCEGRAN (ZONISAMIDE) [Suspect]
     Indication: EPILEPSY
     Dosage: SEE IMAGE
     Route: 048
     Dates: start: 20040716, end: 20040101
  3. EXCEGRAN (ZONISAMIDE) [Suspect]
     Indication: EPILEPSY
     Dosage: SEE IMAGE
     Route: 048
     Dates: start: 20040101, end: 20040930
  4. VALPROATE SODIUM [Concomitant]

REACTIONS (2)
  - ANHIDROSIS [None]
  - BURNING SENSATION [None]
